FAERS Safety Report 9684075 (Version 2)
Quarter: 2013Q4

REPORT INFORMATION
  Report Type: Report from Study
  Country: IT (occurrence: IT)
  Receive Date: 20131112
  Receipt Date: 20131129
  Transmission Date: 20140711
  Serious: Yes (Other)
  Sender: FDA-Public Use
  Company Number: IT-JNJFOC-20131106148

PATIENT
  Age: 48 Year
  Sex: Male

DRUGS (2)
  1. PALEXIA [Suspect]
     Indication: BACK PAIN
     Route: 048
     Dates: start: 20131014, end: 20131024
  2. ISOPROPAMIDE IODIDE [Concomitant]
     Indication: HYPERTENSION
     Route: 048

REACTIONS (4)
  - Anuria [Recovered/Resolved]
  - Pruritus [Recovered/Resolved]
  - Rash [Recovered/Resolved]
  - Headache [Recovered/Resolved]
